FAERS Safety Report 5841202-7 (Version None)
Quarter: 2008Q3

REPORT INFORMATION
  Report Type: 
  Country: None (occurrence: None)
  Receive Date: 20080812
  Receipt Date: 20080806
  Transmission Date: 20090109
  Serious: Yes (Other)
  Sender: FDA-Public Use
  Company Number: US-JNJFOC-20080801665

PATIENT
  Age: 55 Year
  Sex: Female
  Weight: 79.38 kg

DRUGS (3)
  1. EXTRA STRENGTH TYLENOL [Suspect]
     Route: 048
  2. EXTRA STRENGTH TYLENOL [Suspect]
     Indication: PAIN
     Route: 048
  3. ZESTRIL [Concomitant]
     Indication: HYPERTENSION

REACTIONS (2)
  - HAEMOPTYSIS [None]
  - THROAT IRRITATION [None]
